FAERS Safety Report 13505938 (Version 1)
Quarter: 2017Q2

REPORT INFORMATION
  Report Type: Spontaneous
  Country: US (occurrence: US)
  Receive Date: 20170502
  Receipt Date: 20170502
  Transmission Date: 20170830
  Serious: Yes (Other)
  Sender: FDA-Public Use
  Company Number: US-ROCHE-1399901

PATIENT
  Sex: Female

DRUGS (2)
  1. AVASTIN [Suspect]
     Active Substance: BEVACIZUMAB
     Indication: GLIOBLASTOMA
     Route: 065
  2. TEMODAR [Concomitant]
     Active Substance: TEMOZOLOMIDE

REACTIONS (5)
  - Neoplasm progression [Unknown]
  - Cerebrovascular accident [Unknown]
  - Drug ineffective [Unknown]
  - Disease progression [Unknown]
  - Muscular weakness [Unknown]
